FAERS Safety Report 6437453-3 (Version None)
Quarter: 2009Q4

REPORT INFORMATION
  Report Type: 
  Country: None (occurrence: None)
  Receive Date: 20091112
  Receipt Date: 20091029
  Transmission Date: 20100525
  Serious: Yes (Other)
  Sender: FDA-Public Use
  Company Number: PHHY2009SE43736

PATIENT
  Sex: Female

DRUGS (6)
  1. ZOMETA [Suspect]
     Indication: BREAST CANCER METASTATIC
     Dosage: 4MG/5ML, CONCENTRATE FOR INFUSION SOLUTION INTRAVENOUSLY WITH THREE WEEKS APART
     Dates: start: 20070301
  2. ZOMETA [Suspect]
     Indication: METASTASES TO BONE
     Dosage: 4MG/5ML, CONCENTRATE FOR INFUSION SOLUTION
     Dates: start: 20090401
  3. BONDRONAT [Concomitant]
     Dosage: 1 TABLET PER DAY
  4. ARIMIDEX [Concomitant]
  5. MORFIN [Concomitant]
  6. IPREN [Concomitant]

REACTIONS (5)
  - IMPAIRED HEALING [None]
  - INFECTION [None]
  - OSTEONECROSIS [None]
  - TOOTH EXTRACTION [None]
  - TOOTHACHE [None]
